FAERS Safety Report 7777829-5 (Version None)
Quarter: 2011Q3

REPORT INFORMATION
  Report Type: 
  Country: None (occurrence: None)
  Receive Date: 20110926
  Receipt Date: 20110921
  Transmission Date: 20111222
  Serious: Yes (Hospitalization)
  Sender: FDA-Public Use
  Company Number: US-BIOGENIDEC-2011BI035015

PATIENT
  Age: 50 Year
  Sex: Female

DRUGS (4)
  1. TEGRETOL [Concomitant]
  2. TYSABRI [Suspect]
     Route: 042
     Dates: start: 20070123, end: 20101019
  3. TEGRETOL [Concomitant]
     Indication: TRIGEMINAL NEURALGIA
  4. TYSABRI [Suspect]
     Indication: MULTIPLE SCLEROSIS
     Route: 042
     Dates: start: 20110429

REACTIONS (4)
  - TRIGEMINAL NEURALGIA [None]
  - ASTHENIA [None]
  - MULTIPLE SCLEROSIS RELAPSE [None]
  - FATIGUE [None]
